FAERS Safety Report 21271964 (Version 1)
Quarter: 2022Q3

REPORT INFORMATION
  Report Type: Report from Study
  Country: US (occurrence: US)
  Receive Date: 20220830
  Receipt Date: 20220830
  Transmission Date: 20221027
  Serious: Yes (Other)
  Sender: FDA-Public Use
  Company Number: US-ABBVIE-22K-163-4505626-00

PATIENT
  Sex: Female

DRUGS (1)
  1. IMBRUVICA [Suspect]
     Active Substance: IBRUTINIB
     Indication: Chronic lymphocytic leukaemia
     Route: 048
     Dates: start: 20200108

REACTIONS (6)
  - Hip arthroplasty [Unknown]
  - Dry mouth [Unknown]
  - Chapped lips [Unknown]
  - Tongue discolouration [Unknown]
  - Onychoclasis [Unknown]
  - Stomatitis [Unknown]
